FAERS Safety Report 20055035 (Version 1)
Quarter: 2021Q4

REPORT INFORMATION
  Report Type: Spontaneous
  Country: None (occurrence: US)
  Receive Date: 20211110
  Receipt Date: 20211110
  Transmission Date: 20220304
  Serious: Yes (Death, Hospitalization, Other)
  Sender: FDA-Public Use
  Company Number: US-Avion Pharmaceuticals, LLC-2121713

PATIENT
  Age: 32 Year
  Sex: Male

DRUGS (1)
  1. GLOPERBA [Suspect]
     Active Substance: COLCHICINE
     Indication: Myocarditis
     Route: 065

REACTIONS (35)
  - Abdominal pain [Fatal]
  - Nausea [Fatal]
  - Vomiting [Fatal]
  - Diarrhoea [Fatal]
  - Accidental overdose [Fatal]
  - Tachycardia [Fatal]
  - Tachypnoea [Fatal]
  - Leukocytosis [Fatal]
  - Acute kidney injury [Fatal]
  - Acidosis [Fatal]
  - Blood lactic acid increased [Fatal]
  - Hepatic function abnormal [Fatal]
  - Rhabdomyolysis [Fatal]
  - Lipase increased [Fatal]
  - Troponin increased [Fatal]
  - Mental status changes [Fatal]
  - Multiple organ dysfunction syndrome [Fatal]
  - Hypotension [Fatal]
  - Oliguria [Fatal]
  - Pancytopenia [Fatal]
  - Disseminated intravascular coagulation [Fatal]
  - Neutropenia [Fatal]
  - Acute hepatic failure [Fatal]
  - Left ventricular dysfunction [Fatal]
  - Hypoglycaemia [Fatal]
  - Hypocalcaemia [Fatal]
  - Hypomagnesaemia [Fatal]
  - Hyperkalaemia [Fatal]
  - Hyperphosphataemia [Fatal]
  - Generalised oedema [Fatal]
  - Blister [Fatal]
  - Mucosal haemorrhage [Fatal]
  - Livedo reticularis [Fatal]
  - Death [Fatal]
  - Candida infection [Fatal]
